FAERS Safety Report 5103139-0 (Version None)
Quarter: 2006Q3

REPORT INFORMATION
  Report Type: 
  Country: None (occurrence: None)
  Receive Date: 20060908
  Receipt Date: 20060823
  Transmission Date: 20061208
  Serious: Yes (Hospitalization, Disabling)
  Sender: FDA-Public Use
  Company Number: 2006001658

PATIENT

DRUGS (3)
  1. ERLOTINIB (TABLET) (ERLOTINIB HCL) [Suspect]
     Indication: NON-SMALL CELL LUNG CANCER
     Dosage: QD, ORAL
     Route: 048
     Dates: start: 20060725, end: 20060814
  2. OXYCODONE HCL [Concomitant]
  3. AMITRIPTYLINE HCL [Concomitant]

REACTIONS (6)
  - BUTTOCK PAIN [None]
  - CONDITION AGGRAVATED [None]
  - DISEASE PROGRESSION [None]
  - HEPATIC LESION [None]
  - MASS [None]
  - PLEURAL DISORDER [None]
